FAERS Safety Report 7392916-1 (Version None)
Quarter: 2011Q1

REPORT INFORMATION
  Report Type: 
  Country: None (occurrence: None)
  Receive Date: 20110330
  Receipt Date: 20110330
  Transmission Date: 20110831
  Serious: Yes (Other)
  Sender: FDA-Public Use
  Company Number: None

PATIENT
  Age: 56 Year
  Sex: Female
  Weight: 61.2356 kg

DRUGS (2)
  1. ALENDRONATE SODIUM 70 MG NORTHSTAR  LLC/AUROBINDO [Suspect]
     Indication: OSTEOPENIA
     Dates: start: 20110314, end: 20110326
  2. ALENDRONATE SODIUM 70 MG NORTHSTAR  LLC/AUROBINDO [Suspect]
     Indication: OSTEOPOROSIS
     Dates: start: 20110314, end: 20110326

REACTIONS (7)
  - GASTROOESOPHAGEAL REFLUX DISEASE [None]
  - NAUSEA [None]
  - FLATULENCE [None]
  - INSOMNIA [None]
  - ABDOMINAL PAIN UPPER [None]
  - APHAGIA [None]
  - ASTHENIA [None]
